FAERS Safety Report 7391438-1 (Version None)
Quarter: 2011Q2

REPORT INFORMATION
  Report Type: 
  Country: None (occurrence: None)
  Receive Date: 20110404
  Receipt Date: 20110328
  Transmission Date: 20111010
  Serious: Yes (Other)
  Sender: FDA-Public Use
  Company Number: FR-SANOFI-AVENTIS-2011SA018449

PATIENT
  Age: 50 Year
  Sex: Female

DRUGS (13)
  1. SKENAN [Concomitant]
     Dates: start: 20110202
  2. RIFADIN [Suspect]
     Route: 065
     Dates: start: 20110128, end: 20110210
  3. ATARAX [Suspect]
     Route: 065
     Dates: start: 20110128, end: 20110214
  4. ATARAX [Suspect]
     Route: 065
     Dates: start: 20110216, end: 20110219
  5. PARACETAMOL [Concomitant]
     Dates: start: 20110118
  6. AMOXICILLIN [Concomitant]
     Indication: MENINGITIS
     Dates: start: 20110117
  7. LOVENOX [Suspect]
     Route: 065
     Dates: start: 20110121, end: 20110221
  8. SERESTA [Concomitant]
     Route: 065
     Dates: start: 20110207, end: 20110214
  9. GENTAMICIN [Concomitant]
     Indication: MENINGITIS
     Dates: start: 20110117
  10. ZOVIRAX [Concomitant]
     Indication: MENINGITIS
     Dates: start: 20110117
  11. ORBENIN CAP [Suspect]
     Route: 065
     Dates: start: 20110118, end: 20110217
  12. STILNOX [Concomitant]
     Route: 065
     Dates: start: 20110202, end: 20110214
  13. CEPHALOSPORIN C [Concomitant]
     Indication: MENINGITIS
     Dates: start: 20110117

REACTIONS (2)
  - DRUG RASH WITH EOSINOPHILIA AND SYSTEMIC SYMPTOMS [None]
  - TOXIC SKIN ERUPTION [None]
